FAERS Safety Report 4400760-X (Version None)
Quarter: 2004Q3

REPORT INFORMATION
  Report Type: 
  Country: None (occurrence: None)
  Receive Date: 20040907
  Receipt Date: 20021014
  Transmission Date: 20050211
  Serious: No
  Sender: FDA-Public Use
  Company Number: US-BRISTOL-MYERS SQUIBB COMPANY-12076899

PATIENT
  Sex: Female

DRUGS (3)
  1. COUMADIN [Suspect]
  2. FLU VACCINE [Suspect]
     Indication: INFLUENZA IMMUNISATION
  3. GARLIC [Interacting]
     Route: 048

REACTIONS (2)
  - FOOD INTERACTION [None]
  - INTERNATIONAL NORMALISED RATIO INCREASED [None]
